FAERS Safety Report 9491474 (Version 2)
Quarter: 2013Q4

REPORT INFORMATION
  Report Type: Spontaneous
  Country: IT (occurrence: IT)
  Receive Date: 20130830
  Receipt Date: 20131018
  Transmission Date: 20140711
  Serious: Yes (Hospitalization)
  Sender: FDA-Public Use
  Company Number: IT-SANOFI-AVENTIS-2013SA084704

PATIENT
  Age: 69 Year
  Sex: Female

DRUGS (1)
  1. CLOPIDOGREL BISULFATE [Suspect]
     Indication: ISCHAEMIC CARDIOMYOPATHY

REACTIONS (3)
  - Syncope [Recovering/Resolving]
  - Dysuria [Recovering/Resolving]
  - Abdominal pain [Recovering/Resolving]
